FAERS Safety Report 23339432 (Version 1)
Quarter: 2023Q4

REPORT INFORMATION
  Report Type: Spontaneous
  Country: JP (occurrence: JP)
  Receive Date: 20231226
  Receipt Date: 20231226
  Transmission Date: 20240110
  Serious: Yes (Hospitalization)
  Sender: FDA-Public Use
  Company Number: JP-TEVA-VS-3138092

PATIENT
  Age: 75 Year

DRUGS (2)
  1. PREDNISOLONE [Suspect]
     Active Substance: PREDNISOLONE
     Indication: Polymyositis
     Dosage: LATER, DOSE GRADUALLY REDUCED TO 5 MG/DAY BY THE TIME OF SURGERY
     Route: 048
  2. PREDNISOLONE [Suspect]
     Active Substance: PREDNISOLONE
     Indication: Polymyositis
     Dosage: INITIAL DOSE; LATER GRADUALLY REDUCED
     Route: 048

REACTIONS (3)
  - Stenotrophomonas infection [Recovered/Resolved]
  - Bacteraemia [Recovered/Resolved]
  - Abdominal abscess [Recovered/Resolved]
